FAERS Safety Report 9998079 (Version 3)
Quarter: 2014Q2

REPORT INFORMATION
  Report Type: Spontaneous
  Country: GT (occurrence: GT)
  Receive Date: 20140311
  Receipt Date: 20140404
  Transmission Date: 20141212
  Serious: Yes (Hospitalization)
  Sender: FDA-Public Use
  Company Number: GT-BAXTER-2014BAX011297

PATIENT
  Age: 11 Year
  Sex: Female
  Weight: 29 kg

DRUGS (2)
  1. FEIBA 500 U LIOFILIZADO Y SOLUCI?N PARA USO PARENTERAL [Suspect]
     Indication: FACTOR VIII DEFICIENCY
     Route: 042
  2. FEIBA 500 U LIOFILIZADO Y SOLUCI?N PARA USO PARENTERAL [Suspect]
     Dosage: 9 VIALS PER WEEK
     Route: 042
     Dates: start: 20140325

REACTIONS (2)
  - Pulmonary haemorrhage [Recovered/Resolved]
  - Pneumothorax [Recovered/Resolved]
